FAERS Safety Report 9393474 (Version 1)
Quarter: 2013Q3

REPORT INFORMATION
  Report Type: Spontaneous
  Country: IT (occurrence: IT)
  Receive Date: 20130710
  Receipt Date: 20130710
  Transmission Date: 20140515
  Serious: Yes (Hospitalization)
  Sender: FDA-Public Use
  Company Number: PHHY2013IT071914

PATIENT
  Age: 69 Year
  Sex: Male

DRUGS (14)
  1. FLUDARABINE [Suspect]
     Indication: ACUTE MYELOID LEUKAEMIA
     Dosage: 43.8 MG, QD
     Route: 042
     Dates: start: 20130111, end: 20130115
  2. CYTARABINE [Suspect]
     Indication: ACUTE MYELOID LEUKAEMIA
     Dosage: 3500 MG, QD
     Route: 042
     Dates: start: 20130111, end: 20130115
  3. ALLOPURINOL [Concomitant]
     Indication: HYPERURICAEMIA
     Dosage: 300 MG
     Route: 048
     Dates: start: 20121222, end: 20130120
  4. DECADRAN [Concomitant]
     Dosage: 8 MG
     Route: 042
     Dates: start: 20130111, end: 20130115
  5. LASIX [Concomitant]
  6. GLAZIDIM [Concomitant]
     Dosage: 1 G
     Route: 042
     Dates: start: 20130105, end: 20130121
  7. COVERSYL [Concomitant]
     Indication: CARDIAC DISORDER
     Dosage: 5 MG
     Route: 048
     Dates: start: 20121222, end: 20130210
  8. MYELOSTIM [Concomitant]
     Indication: NEUTROPENIA
     Dosage: 33.6 MIU
     Route: 058
     Dates: start: 20130111, end: 20130115
  9. LAEVOLAC [Concomitant]
     Dosage: 45 ML
     Route: 048
     Dates: start: 20121225, end: 20130116
  10. ACICLIN [Concomitant]
     Indication: ANTIVIRAL PROPHYLAXIS
     Dosage: 400 MG
     Route: 048
     Dates: start: 20130106, end: 20130219
  11. MYCOSTATIN [Concomitant]
     Dosage: 30 ML
     Route: 049
     Dates: start: 20130107, end: 20130116
  12. GADRAL [Concomitant]
     Dosage: 45 ML
     Route: 048
     Dates: start: 20130111, end: 20130116
  13. VISUMETAZONE [Concomitant]
     Dosage: 3 DRP
     Route: 047
     Dates: start: 20130111, end: 20130117
  14. ZOFRAN [Concomitant]
     Indication: PROPHYLAXIS OF NAUSEA AND VOMITING
     Dosage: 3 U
     Route: 042
     Dates: start: 20130111, end: 20130115

REACTIONS (6)
  - Angina pectoris [Recovered/Resolved with Sequelae]
  - Chest pain [Recovered/Resolved with Sequelae]
  - Acute coronary syndrome [Recovered/Resolved with Sequelae]
  - Venous pressure increased [Recovered/Resolved with Sequelae]
  - Staphylococcal infection [Recovered/Resolved with Sequelae]
  - Ventricular extrasystoles [Recovered/Resolved with Sequelae]
